FAERS Safety Report 4699326-6 (Version None)
Quarter: 2005Q2

REPORT INFORMATION
  Report Type: 
  Country: None (occurrence: None)
  Receive Date: 20050624
  Receipt Date: 20050613
  Transmission Date: 20051028
  Serious: Yes (Other)
  Sender: FDA-Public Use
  Company Number: JP-GLAXOSMITHKLINE-B0384559A

PATIENT
  Age: 22 Year
  Sex: Male

DRUGS (1)
  1. ZOVIRAX [Suspect]
     Indication: ENCEPHALITIS HERPES
     Route: 042
     Dates: start: 20020705

REACTIONS (4)
  - PLATELET COUNT DECREASED [None]
  - SCAB [None]
  - SEPSIS [None]
  - WHITE BLOOD CELL COUNT DECREASED [None]
